FAERS Safety Report 14647839 (Version 1)
Quarter: 2018Q1

REPORT INFORMATION
  Report Type: Spontaneous
  Country: US (occurrence: US)
  Receive Date: 20180315
  Receipt Date: 20180315
  Transmission Date: 20180509
  Serious: No
  Sender: FDA-Public Use
  Company Number: None

PATIENT
  Age: 73 Year

DRUGS (1)
  1. REMICADE [Suspect]
     Active Substance: INFLIXIMAB
     Indication: RHEUMATOID ARTHRITIS
     Dosage: 200 MG WEEKS 0,2,6 IV
     Route: 042
     Dates: start: 20180209

REACTIONS (4)
  - Infusion related reaction [None]
  - Headache [None]
  - Chest pain [None]
  - Nausea [None]
